FAERS Safety Report 6853564-2 (Version None)
Quarter: 2010Q3

REPORT INFORMATION
  Report Type: 
  Country: None (occurrence: None)
  Receive Date: 20100717
  Receipt Date: 20071211
  Transmission Date: 20110219
  Serious: No
  Sender: FDA-Public Use
  Company Number: US-PFIZER INC-2007106088

PATIENT
  Sex: Female
  Weight: 81.8 kg

DRUGS (5)
  1. CHANTIX [Suspect]
     Indication: SMOKING CESSATION THERAPY
     Dates: start: 20071101
  2. METFORMIN/PIOGLITAZONE [Concomitant]
     Indication: DIABETES MELLITUS
  3. CADUET [Concomitant]
     Indication: BLOOD CHOLESTEROL INCREASED
  4. LISINOPRIL [Concomitant]
     Indication: HYPERTENSION
  5. VICODIN [Concomitant]
     Indication: PAIN

REACTIONS (3)
  - ERUCTATION [None]
  - RETCHING [None]
  - VOMITING [None]
